FAERS Safety Report 24095944 (Version 1)
Quarter: 2024Q3

REPORT INFORMATION
  Report Type: Spontaneous
  Country: FR (occurrence: FR)
  Receive Date: 20240716
  Receipt Date: 20240716
  Transmission Date: 20241016
  Serious: Yes (Other)
  Sender: NOVARTIS
  Company Number: None

PATIENT
  Age: 50 Year
  Sex: Male
  Weight: 87.7 kg

DRUGS (5)
  1. ENTRESTO [Suspect]
     Active Substance: SACUBITRIL\VALSARTAN
     Indication: Cardiac failure
     Dosage: 2 DOSAGE FORM, QD
     Route: 048
     Dates: start: 20200909
  2. DAPAGLIFLOZIN [Suspect]
     Active Substance: DAPAGLIFLOZIN
     Indication: Cardiac failure
     Dosage: 10 MG, QD (COATED TABLET)
     Route: 048
     Dates: start: 20220301, end: 20240201
  3. LANSOPRAZOLE [Suspect]
     Active Substance: LANSOPRAZOLE
     Indication: Product used for unknown indication
     Dosage: 15 MG, QD
     Route: 048
     Dates: start: 20210501
  4. BISOPROLOL [Suspect]
     Active Substance: BISOPROLOL\BISOPROLOL FUMARATE
     Indication: Cardiac failure
     Dosage: 10 MG, QD
     Route: 048
     Dates: start: 20200519
  5. INSPRA [Suspect]
     Active Substance: EPLERENONE
     Indication: Cardiac failure
     Dosage: 25 MG, QD
     Route: 048
     Dates: start: 20201007

REACTIONS (1)
  - Balanoposthitis [Recovered/Resolved]

NARRATIVE: CASE EVENT DATE: 20240101
